FAERS Safety Report 5530463-X (Version None)
Quarter: 2007Q4

REPORT INFORMATION
  Report Type: 
  Country: None (occurrence: None)
  Receive Date: 20071130
  Receipt Date: 20071129
  Transmission Date: 20080405
  Serious: Yes (Death, Other)
  Sender: FDA-Public Use
  Company Number: US-BRISTOL-MYERS SQUIBB COMPANY-13994470

PATIENT
  Age: 15 Year
  Sex: Female

DRUGS (12)
  1. CYCLOPHOSPHAMIDE [Suspect]
     Indication: ACUTE MYELOID LEUKAEMIA
  2. MUROMANAB-CD3 [Suspect]
     Indication: ACUTE MYELOID LEUKAEMIA
  3. THIOTEPA [Suspect]
     Indication: ACUTE MYELOID LEUKAEMIA
  4. ANTITHYMOCYTE GLOBULIN [Suspect]
     Indication: ACUTE MYELOID LEUKAEMIA
  5. RADIOTHERAPY [Suspect]
     Indication: ACUTE MYELOID LEUKAEMIA
  6. HEPARIN [Suspect]
  7. IMMUNE GLOBULIN (HUMAN) [Suspect]
  8. METRONIDAZOLE [Suspect]
  9. AMPHOTERICIN B [Suspect]
  10. COTRIM [Suspect]
  11. VORICONAZOLE [Suspect]
  12. CASPOFUNGIN ACETATE [Suspect]

REACTIONS (7)
  - ASPERGILLOSIS [None]
  - BLOOD LACTATE DEHYDROGENASE INCREASED [None]
  - EPSTEIN-BARR VIRUS INFECTION [None]
  - LUNG NEOPLASM [None]
  - OVARIAN CYST [None]
  - PLEURAL EFFUSION [None]
  - PYREXIA [None]
